FAERS Safety Report 7039297-0 (Version None)
Quarter: 2010Q3

REPORT INFORMATION
  Report Type: 
  Country: None (occurrence: None)
  Receive Date: 20100929
  Receipt Date: 20100609
  Transmission Date: 20110219
  Serious: Yes (Other)
  Sender: FDA-Public Use
  Company Number: US-WYE-H15810610

PATIENT
  Age: 56 Year
  Sex: Female
  Weight: 68.1 kg

DRUGS (7)
  1. PRISTIQ [Suspect]
     Indication: DEPRESSION
     Dosage: 50 MG 1X PER 1 DAY, ORAL
     Route: 048
     Dates: start: 20100622, end: 20100629
  2. LORAZEPAM [Suspect]
     Indication: ANXIETY
     Dosage: 1 MG BID OR TID LONG TERM
     Dates: end: 20100601
  3. LORAZEPAM [Suspect]
     Indication: ANXIETY
     Dosage: 1 MG BID OR TID LONG TERM
     Dates: start: 20100101
  4. PROTONIX [Concomitant]
  5. RANITIDINE [Concomitant]
  6. DIOVAN [Concomitant]
  7. PRAVASTATIN [Concomitant]

REACTIONS (7)
  - DRUG WITHDRAWAL SYNDROME [None]
  - DRY MOUTH [None]
  - DRY THROAT [None]
  - ECCHYMOSIS [None]
  - HEADACHE [None]
  - NAUSEA [None]
  - RASH [None]
